FAERS Safety Report 9815240 (Version 2)
Quarter: 2014Q1

REPORT INFORMATION
  Report Type: Report from Study
  Country: DE (occurrence: DE)
  Receive Date: 20140114
  Receipt Date: 20140124
  Transmission Date: 20141002
  Serious: Yes (Hospitalization)
  Sender: FDA-Public Use
  Company Number: DE-ROCHE-1329070

PATIENT
  Age: 54 Year
  Sex: Female
  Weight: 60 kg

DRUGS (3)
  1. TRASTUZUMAB [Suspect]
     Indication: BREAST CANCER
     Dosage: MOST RECENT DOSE OF TRASTUZUMAB WAS ON 11/DEC/2013
     Route: 042
     Dates: start: 20131030
  2. PERTUZUMAB [Suspect]
     Indication: BREAST CANCER
     Dosage: MOST RECENT DOSE OF PERTUZUMAB WAS ON 11/DEC/2013
     Route: 042
     Dates: start: 20131030
  3. PACLITAXEL [Suspect]
     Indication: BREAST CANCER
     Dosage: MOST RECENT DOSE OF PACLITAXEL WAS ON 18/DEC/2013.
     Route: 042
     Dates: start: 20131030

REACTIONS (1)
  - Atypical pneumonia [Not Recovered/Not Resolved]
